FAERS Safety Report 8148819-8 (Version None)
Quarter: 2012Q1

REPORT INFORMATION
  Report Type: 
  Country: None (occurrence: None)
  Receive Date: 20120218
  Receipt Date: 20110718
  Transmission Date: 20120608
  Serious: No
  Sender: FDA-Public Use
  Company Number: US-ALLERGAN-1109699US

PATIENT
  Age: 56 Year
  Sex: Female
  Weight: 49.887 kg

DRUGS (1)
  1. BOTOX COSMETIC [Suspect]
     Indication: SKIN WRINKLING
     Dosage: UNK
     Dates: start: 20101109, end: 20101109

REACTIONS (5)
  - DIZZINESS [None]
  - SINUS HEADACHE [None]
  - DEAFNESS UNILATERAL [None]
  - VISUAL IMPAIRMENT [None]
  - HEADACHE [None]
